FAERS Safety Report 7266576-4 (Version None)
Quarter: 2011Q1

REPORT INFORMATION
  Report Type: 
  Country: None (occurrence: None)
  Receive Date: 20110131
  Receipt Date: 20110121
  Transmission Date: 20110831
  Serious: Yes (Disabling)
  Sender: FDA-Public Use
  Company Number: FR-B.I. PHARMACEUTICALS,INC./RIDGEFIELD-2011-FF-00053FF

PATIENT
  Sex: Male

DRUGS (1)
  1. MECIR LP 0.4 [Suspect]
     Route: 048

REACTIONS (2)
  - UPPER AIRWAY OBSTRUCTION [None]
  - RHINALGIA [None]
